FAERS Safety Report 16706627 (Version 1)
Quarter: 2019Q3

REPORT INFORMATION
  Report Type: Spontaneous
  Country: US (occurrence: US)
  Receive Date: 20190815
  Receipt Date: 20190815
  Transmission Date: 20191004
  Serious: No
  Sender: FDA-Public Use
  Company Number: US-PACIRA-201700071

PATIENT
  Age: 15 Year
  Sex: Female

DRUGS (2)
  1. MARCAINE [Suspect]
     Active Substance: BUPIVACAINE HYDROCHLORIDE
     Indication: POSTOPERATIVE ANALGESIA
     Dosage: 266 MG EXPAREL ADMIXED WITH 30ML 0.25% MARCAINE AND 30ML 0.9% SALINE
     Dates: start: 20170522, end: 20170522
  2. EXPAREL [Suspect]
     Active Substance: BUPIVACAINE
     Indication: POSTOPERATIVE ANALGESIA
     Dosage: 266 MG ADMIXED WITH 30ML 0.25% MARCAINE AND 30ML 0.9% SALINE
     Dates: start: 20170522, end: 20170522

REACTIONS (2)
  - Product use issue [Unknown]
  - Maternal exposure during delivery [Unknown]

NARRATIVE: CASE EVENT DATE: 20170522
